FAERS Safety Report 21619211 (Version 2)
Quarter: 2022Q4

REPORT INFORMATION
  Report Type: Report from Study
  Country: US (occurrence: US)
  Receive Date: 20221120
  Receipt Date: 20221217
  Transmission Date: 20230113
  Serious: No
  Sender: FDA-Public Use
  Company Number: US-002147023-NVSC2022US257459

PATIENT
  Sex: Male

DRUGS (1)
  1. COSENTYX [Suspect]
     Active Substance: SECUKINUMAB
     Indication: Psoriasis
     Dosage: UNK
     Route: 058

REACTIONS (6)
  - Depression [Unknown]
  - Injection site haemorrhage [Unknown]
  - Acne [Unknown]
  - Erythema [Unknown]
  - Pruritus [Unknown]
  - Therapeutic product effect incomplete [Unknown]
